FAERS Safety Report 21522465 (Version 1)
Quarter: 2022Q4

REPORT INFORMATION
  Report Type: Spontaneous
  Country: US (occurrence: US)
  Receive Date: 20221029
  Receipt Date: 20221029
  Transmission Date: 20230113
  Serious: Yes (Other)
  Sender: FDA-Public Use
  Company Number: US-ABBVIE-4177513

PATIENT
  Sex: Female
  Weight: 99.79 kg

DRUGS (17)
  1. HUMIRA [Suspect]
     Active Substance: ADALIMUMAB
     Indication: Rheumatoid arthritis
     Route: 058
     Dates: start: 201909, end: 202109
  2. HUMIRA [Suspect]
     Active Substance: ADALIMUMAB
     Route: 058
     Dates: start: 2017, end: 201909
  3. HUMIRA [Suspect]
     Active Substance: ADALIMUMAB
     Route: 058
     Dates: start: 202109
  4. PREDNISONE [Concomitant]
     Active Substance: PREDNISONE
     Indication: Rheumatoid arthritis
  5. ZETIA [Concomitant]
     Active Substance: EZETIMIBE
     Indication: Blood cholesterol
  6. ALBUTEROL [Concomitant]
     Active Substance: ALBUTEROL
     Indication: Asthma
  7. METHOTREXATE [Suspect]
     Active Substance: METHOTREXATE
     Indication: Rheumatoid arthritis
     Dosage: TIME INTERVAL: 0.16666667 WEEKS
     Route: 048
  8. SINGULAIR [Concomitant]
     Active Substance: MONTELUKAST SODIUM
     Indication: Asthma
  9. DEXILANT [Concomitant]
     Active Substance: DEXLANSOPRAZOLE
     Indication: Gastrooesophageal reflux disease
  10. LIDOCAINE [Concomitant]
     Active Substance: LIDOCAINE
     Indication: Pain
  11. LISINOPRIL [Concomitant]
     Active Substance: LISINOPRIL
     Indication: Blood pressure measurement
  12. GUAIFENESIN [Concomitant]
     Active Substance: GUAIFENESIN
     Indication: Asthma
  13. MAXZIDE [Concomitant]
     Active Substance: HYDROCHLOROTHIAZIDE\TRIAMTERENE
     Indication: Blood pressure measurement
  14. TRIAMCINOLONE [Concomitant]
     Active Substance: TRIAMCINOLONE
     Indication: Pruritus
  15. LYRICA [Concomitant]
     Active Substance: PREGABALIN
     Indication: Fibromyalgia
  16. NUCYNTA [Concomitant]
     Active Substance: TAPENTADOL HYDROCHLORIDE
     Indication: Arthralgia
  17. LEFLUNOMIDE [Suspect]
     Active Substance: LEFLUNOMIDE
     Indication: Rheumatoid arthritis
     Dosage: 10 MILLIGRAM
     Route: 048

REACTIONS (10)
  - Food allergy [Recovering/Resolving]
  - Food allergy [Recovering/Resolving]
  - Swelling face [Recovering/Resolving]
  - Erythema [Recovering/Resolving]
  - Hypersensitivity [Recovered/Resolved]
  - Hangover [Recovered/Resolved]
  - Feeling hot [Recovering/Resolving]
  - Therapeutic product effect incomplete [Recovered/Resolved]
  - Malaise [Recovered/Resolved]
  - Musculoskeletal stiffness [Recovered/Resolved]

NARRATIVE: CASE EVENT DATE: 20020101
